FAERS Safety Report 18724344 (Version 3)
Quarter: 2022Q2

REPORT INFORMATION
  Report Type: Spontaneous
  Country: US (occurrence: US)
  Receive Date: 20210111
  Receipt Date: 20220406
  Transmission Date: 20220721
  Serious: No
  Sender: FDA-Public Use
  Company Number: US-PFIZER INC-2021005771

PATIENT
  Age: 76 Year
  Sex: Female

DRUGS (1)
  1. IBRANCE [Suspect]
     Active Substance: PALBOCICLIB
     Dosage: 100 MG

REACTIONS (3)
  - Hypoacusis [Unknown]
  - Ear discomfort [Unknown]
  - Product dose omission issue [Unknown]
